FAERS Safety Report 5521125-3 (Version None)
Quarter: 2007Q4

REPORT INFORMATION
  Report Type: 
  Country: None (occurrence: None)
  Receive Date: 20071119
  Receipt Date: 20071113
  Transmission Date: 20080405
  Serious: Yes (Life-Threatening, Hospitalization)
  Sender: FDA-Public Use
  Company Number: GB-ASTRAZENECA-2007GB02304

PATIENT
  Age: 70 Year
  Sex: Male

DRUGS (2)
  1. LIGNOCAINE [Suspect]
     Route: 061
  2. LISINOPRIL [Suspect]
     Route: 048

REACTIONS (4)
  - ANGIOEDEMA [None]
  - CONVULSION [None]
  - RENAL FAILURE ACUTE [None]
  - SWOLLEN TONGUE [None]
